FAERS Safety Report 7497511-1 (Version None)
Quarter: 2011Q2

REPORT INFORMATION
  Report Type: 
  Country: None (occurrence: None)
  Receive Date: 20110523
  Receipt Date: 20110502
  Transmission Date: 20111010
  Serious: Yes (Hospitalization)
  Sender: FDA-Public Use
  Company Number: PHHO2011CH07653

PATIENT
  Sex: Male

DRUGS (11)
  1. AFINITOR [Suspect]
     Dosage: UNK MG, UNK
  2. AFINITOR [Suspect]
     Indication: HEPATIC NEOPLASM MALIGNANT
     Dosage: UNK
  3. PLACEBO [Suspect]
     Dosage: UNK MG, UNK
  4. RAD001C [Suspect]
     Indication: HEPATIC NEOPLASM MALIGNANT
     Dosage: 5 MG, UNK
     Route: 048
     Dates: start: 20101129, end: 20110407
  5. BLINDED NO TREATMENT RECEIVED [Suspect]
     Indication: HEPATIC NEOPLASM MALIGNANT
     Dosage: UNK
  6. RAD001C [Suspect]
     Dosage: 5 MG, UNK
     Route: 048
     Dates: start: 20110422
  7. BLINDED NO TREATMENT RECEIVED [Suspect]
     Dosage: UNK MG, UNK
  8. ZOLPIDEM [Concomitant]
  9. PLACEBO [Suspect]
     Indication: HEPATIC NEOPLASM MALIGNANT
     Dosage: UNK
  10. DOXORUBICIN HCL [Concomitant]
     Indication: HEPATIC NEOPLASM MALIGNANT
     Dosage: 150 MG, DAILY
     Route: 048
     Dates: start: 20101206, end: 20110215
  11. SERTRALINE HYDROCHLORIDE [Concomitant]

REACTIONS (3)
  - FATIGUE [None]
  - ASTHENIA [None]
  - DEPRESSION [None]
